FAERS Safety Report 15532341 (Version 7)
Quarter: 2019Q4

REPORT INFORMATION
  Report Type: Spontaneous
  Country: JP (occurrence: JP)
  Receive Date: 20181019
  Receipt Date: 20191106
  Transmission Date: 20200122
  Serious: Yes (Death, Hospitalization, Other)
  Sender: FDA-Public Use
  Company Number: JP-AMGEN-JPNSP2018117819

PATIENT
  Age: 74 Year
  Sex: Female
  Weight: 58 kg

DRUGS (5)
  1. 5-FU [FLUOROURACIL] [Concomitant]
     Active Substance: FLUOROURACIL
     Indication: COLON CANCER
     Dosage: Q2WK
     Route: 040
     Dates: start: 20180403, end: 20180713
  2. CAMPTO [Concomitant]
     Active Substance: IRINOTECAN
     Indication: COLON CANCER
     Dosage: 230 MILLIGRAM, Q2WEEKS
     Route: 041
     Dates: start: 20180403, end: 20180713
  3. LEVOFOLINATE [CALCIUM LEVOFOLINATE] [Concomitant]
     Active Substance: LEVOLEUCOVORIN CALCIUM
     Indication: COLON CANCER
     Dosage: 300 MILLIGRAM, Q2WEEKS
     Route: 041
     Dates: start: 20180403, end: 20180713
  4. 5-FU [FLUOROURACIL] [Concomitant]
     Active Substance: FLUOROURACIL
     Dosage: 4380 MG, Q2WK
     Route: 041
     Dates: start: 20180403, end: 20180713
  5. VECTIBIX [Suspect]
     Active Substance: PANITUMUMAB
     Indication: COLON CANCER
     Dosage: 350 MG, Q2WK
     Route: 041
     Dates: start: 20180403, end: 20180713

REACTIONS (4)
  - Vascular device infection [Recovering/Resolving]
  - Pneumonia [Recovered/Resolved]
  - Colon cancer [Fatal]
  - Skin disorder [Not Recovered/Not Resolved]

NARRATIVE: CASE EVENT DATE: 20180718
